FAERS Safety Report 4557538-6 (Version None)
Quarter: 2005Q1

REPORT INFORMATION
  Report Type: 
  Country: None (occurrence: None)
  Receive Date: 20050103
  Receipt Date: 20041005
  Transmission Date: 20050727
  Serious: Yes (Other)
  Sender: FDA-Public Use
  Company Number: 2004UW18392

PATIENT
  Age: 71 Year
  Sex: Female
  Weight: 118.8424 kg

DRUGS (11)
  1. CRESTOR [Suspect]
     Indication: BLOOD CHOLESTEROL INCREASED
     Dosage: 5 MG DAILY PO
     Route: 048
  2. CRESTOR [Suspect]
     Indication: BLOOD CHOLESTEROL INCREASED
     Dosage: 10 MG QOD PO
     Route: 048
  3. HYZAAR [Concomitant]
  4. ASPIRIN [Concomitant]
  5. GLUCOVANCE [Concomitant]
  6. CENTRUM [Concomitant]
  7. CALCIUM MAGNESIUM ZINC [Concomitant]
  8. AVANDIA [Concomitant]
  9. OCUVITE [Concomitant]
  10. NORVASC [Concomitant]
  11. VITAMIN E [Concomitant]

REACTIONS (2)
  - OROPHARYNGEAL SWELLING [None]
  - PHARYNGOLARYNGEAL PAIN [None]
